FAERS Safety Report 8986568 (Version 2)
Quarter: 2013Q1

REPORT INFORMATION
  Report Type: Spontaneous
  Country: FR (occurrence: FR)
  Receive Date: 20121227
  Receipt Date: 20130104
  Transmission Date: 20140127
  Serious: Yes (Hospitalization)
  Sender: FDA-Public Use
  Company Number: FR-JNJFOC-20121207839

PATIENT
  Age: 42 Year
  Sex: Male

DRUGS (3)
  1. KETODERM [Suspect]
     Indication: PRODUCT USED FOR UNKNOWN INDICATION
     Route: 061
     Dates: start: 20120816, end: 20120820
  2. LOCERYL [Suspect]
     Indication: ONYCHOMYCOSIS
     Route: 061
     Dates: start: 20120810, end: 20120820
  3. MYCOSTER [Suspect]
     Indication: PRODUCT USED FOR UNKNOWN INDICATION
     Route: 061
     Dates: start: 20120816, end: 20120820

REACTIONS (4)
  - Pruritus [Not Recovered/Not Resolved]
  - Eczema [Not Recovered/Not Resolved]
  - Photosensitivity reaction [Not Recovered/Not Resolved]
  - Prurigo [Unknown]
